FAERS Safety Report 17741044 (Version 1)
Quarter: 2020Q2

REPORT INFORMATION
  Report Type: Report from Study
  Country: None (occurrence: BR)
  Receive Date: 20200504
  Receipt Date: 20200504
  Transmission Date: 20200714
  Serious: Yes (Other)
  Sender: FDA-Public Use
  Company Number: BR-ABBVIE-20K-020-3387271-00

PATIENT
  Age: 44 Year
  Sex: Female
  Weight: 70 kg

DRUGS (2)
  1. HUMIRA [Suspect]
     Active Substance: ADALIMUMAB
     Indication: HIDRADENITIS
     Route: 058
     Dates: start: 201711, end: 201801
  2. HUMIRA [Suspect]
     Active Substance: ADALIMUMAB
     Dosage: LOADING DOSE
     Route: 058
     Dates: start: 20200429, end: 20200429

REACTIONS (7)
  - Skin tightness [Unknown]
  - Scar [Not Recovered/Not Resolved]
  - Application site pain [Recovered/Resolved]
  - Oropharyngeal pain [Recovered/Resolved]
  - Skin infection [Recovered/Resolved]
  - Skin injury [Recovered/Resolved]
  - Hidradenitis [Not Recovered/Not Resolved]

NARRATIVE: CASE EVENT DATE: 201912
